FAERS Safety Report 4792805-2 (Version None)
Quarter: 2005Q4

REPORT INFORMATION
  Report Type: 
  Country: None (occurrence: None)
  Receive Date: 20051010
  Receipt Date: 20050929
  Transmission Date: 20060501
  Serious: Yes (Hospitalization, Other)
  Sender: FDA-Public Use
  Company Number: US-MERCK-0510USA00197

PATIENT
  Age: 40 Year
  Sex: Male
  Weight: 68 kg

DRUGS (8)
  1. VIOXX [Suspect]
     Indication: BACK DISORDER
     Route: 048
     Dates: start: 20010514, end: 20010721
  2. CLARITIN-D [Concomitant]
     Route: 065
  3. ASPIRIN [Concomitant]
     Route: 065
  4. METHOCARBAMOL [Concomitant]
     Route: 065
  5. ERYTHROMYCIN [Concomitant]
     Route: 065
  6. DILANTIN [Concomitant]
     Route: 065
  7. [COMPOSITION UNSPECIFIED] [Concomitant]
     Route: 065
  8. CYCLOBENZAPRINE HYDROCHLORIDE [Concomitant]
     Route: 065

REACTIONS (5)
  - ABSCESS [None]
  - CHEST PAIN [None]
  - COLON INJURY [None]
  - LOSS OF CONSCIOUSNESS [None]
  - MYOCARDIAL INFARCTION [None]
